FAERS Safety Report 7799128-8 (Version None)
Quarter: 2011Q4

REPORT INFORMATION
  Report Type: 
  Country: None (occurrence: None)
  Receive Date: 20111006
  Receipt Date: 20111003
  Transmission Date: 20120403
  Serious: Yes (Other)
  Sender: FDA-Public Use
  Company Number: US-PFIZER INC-2011236461

PATIENT
  Sex: Female
  Weight: 64.399 kg

DRUGS (2)
  1. LIPITOR [Suspect]
     Indication: BLOOD CHOLESTEROL ABNORMAL
     Dosage: 10 MG, DAILY
     Route: 048
  2. LISINOPRIL [Concomitant]
     Indication: BLOOD PRESSURE ABNORMAL
     Dosage: 20 MG, DAILY

REACTIONS (1)
  - CAECUM OPERATION [None]
